FAERS Safety Report 19504127 (Version 1)
Quarter: 2021Q3

REPORT INFORMATION
  Report Type: Spontaneous
  Country: TR (occurrence: TR)
  Receive Date: 20210707
  Receipt Date: 20210707
  Transmission Date: 20211014
  Serious: Yes (Other)
  Sender: FDA-Public Use
  Company Number: NVSC2021TR146590

PATIENT
  Age: 46 Year
  Sex: Female

DRUGS (1)
  1. VERXANT [Suspect]
     Active Substance: SECUKINUMAB
     Indication: ANKYLOSING SPONDYLITIS
     Dosage: UNK UNK, QW
     Route: 065
     Dates: start: 20210602

REACTIONS (14)
  - Neck pain [Unknown]
  - Injection site pain [Unknown]
  - Insomnia [Unknown]
  - Musculoskeletal stiffness [Not Recovered/Not Resolved]
  - Arthralgia [Not Recovered/Not Resolved]
  - Tremor [Unknown]
  - Illness [Not Recovered/Not Resolved]
  - Burning sensation [Unknown]
  - Pain [Recovered/Resolved]
  - Wrong technique in product usage process [Unknown]
  - Uterine leiomyoma [Recovered/Resolved]
  - Headache [Unknown]
  - Uterine pain [Recovered/Resolved]
  - Therapeutic response unexpected [Unknown]

NARRATIVE: CASE EVENT DATE: 20210624
